FAERS Safety Report 9554936 (Version 1)
Quarter: 2013Q3

REPORT INFORMATION
  Report Type: Spontaneous
  Country: US (occurrence: US)
  Receive Date: 20130926
  Receipt Date: 20130926
  Transmission Date: 20140515
  Serious: No
  Sender: FDA-Public Use
  Company Number: US-009507513-1309USA010129

PATIENT
  Sex: Male

DRUGS (4)
  1. JANUVIA [Suspect]
     Route: 048
  2. METFORMIN [Concomitant]
  3. INSULIN [Concomitant]
  4. VICTOZA [Concomitant]

REACTIONS (1)
  - Hypoaesthesia oral [Unknown]
